FAERS Safety Report 25974342 (Version 3)
Quarter: 2025Q4

REPORT INFORMATION
  Report Type: Spontaneous
  Country: US (occurrence: US)
  Receive Date: 20251029
  Receipt Date: 20251224
  Transmission Date: 20260117
  Serious: Yes (Hospitalization, Other)
  Sender: TEVA
  Company Number: US-TEVA-VS-3385066

PATIENT
  Age: 72 Year
  Sex: Female

DRUGS (3)
  1. AUSTEDO XR [Suspect]
     Active Substance: DEUTETRABENAZINE
     Indication: Oromandibular dystonia
     Dosage: DAILY, 2 TABLETS OF 24MG DAILY
     Route: 048
     Dates: start: 20240502
  2. AUSTEDO XR [Suspect]
     Active Substance: DEUTETRABENAZINE
     Indication: Oromandibular dystonia
     Route: 058
     Dates: start: 20240502
  3. REYVOW [Concomitant]
     Active Substance: LASMIDITAN
     Indication: Migraine
     Dosage: DAILY AS NEEDED
     Route: 048

REACTIONS (5)
  - Skull fracture [Recovering/Resolving]
  - Product use in unapproved indication [Unknown]
  - Fall [Recovering/Resolving]
  - Hospitalisation [Unknown]
  - Adverse event [Not Recovered/Not Resolved]

NARRATIVE: CASE EVENT DATE: 20240502
